FAERS Safety Report 26131741 (Version 1)
Quarter: 2025Q4

REPORT INFORMATION
  Report Type: Spontaneous
  Country: US (occurrence: None)
  Receive Date: 20251208
  Receipt Date: 20251208
  Transmission Date: 20260118
  Serious: Yes (Hospitalization)
  Sender: FDA-CTU
  Company Number: None

PATIENT
  Age: 28 Month
  Sex: Female

DRUGS (2)
  1. GENOTROPIN [Suspect]
     Active Substance: SOMATROPIN
     Indication: Hypopituitarism
     Dosage: INJECT 0.5 MG UNDER THE SKIN (SUBCUTANEOUS INJECTION) DAILY
     Route: 058
     Dates: start: 20230815
  2. PREDNISONE [Concomitant]
     Active Substance: PREDNISONE

REACTIONS (2)
  - Respiratory disorder [None]
  - Intentional dose omission [None]

NARRATIVE: CASE EVENT DATE: 20251102
